FAERS Safety Report 10785731 (Version 3)
Quarter: 2016Q2

REPORT INFORMATION
  Report Type: Report from Study
  Country: CA (occurrence: CA)
  Receive Date: 20150211
  Receipt Date: 20160601
  Transmission Date: 20160815
  Serious: Yes (Disabling, Other)
  Sender: FDA-Public Use
  Company Number: PHHY2015CA015875

PATIENT
  Age: 61 Year
  Sex: Female

DRUGS (7)
  1. ACLASTA [Suspect]
     Active Substance: ZOLEDRONIC ACID
     Dosage: 5 MG
     Route: 042
     Dates: start: 20081208
  2. ACLASTA [Suspect]
     Active Substance: ZOLEDRONIC ACID
     Dosage: 5 MG, UNK
     Route: 042
     Dates: start: 20121219
  3. ACLASTA [Suspect]
     Active Substance: ZOLEDRONIC ACID
     Indication: OSTEOPOROSIS
     Dosage: 5 MG, (5 MG/100 ML)
     Route: 042
     Dates: start: 2005
  4. ACLASTA [Suspect]
     Active Substance: ZOLEDRONIC ACID
     Dosage: 5 MG, UNK
     Route: 042
     Dates: start: 20111028
  5. ACLASTA [Suspect]
     Active Substance: ZOLEDRONIC ACID
     Dosage: 5 MG, UNK
     Route: 042
     Dates: start: 20140428
  6. ACLASTA [Suspect]
     Active Substance: ZOLEDRONIC ACID
     Dosage: 5 MG, UNK
     Route: 042
     Dates: start: 20101013
  7. ACLASTA [Suspect]
     Active Substance: ZOLEDRONIC ACID
     Dosage: 5 MG, UNK
     Route: 042
     Dates: start: 20150515

REACTIONS (7)
  - Lumbar vertebral fracture [Not Recovered/Not Resolved]
  - Adrenal insufficiency [Unknown]
  - Spinal compression fracture [Not Recovered/Not Resolved]
  - Lung infiltration [Unknown]
  - Thoracic vertebral fracture [Not Recovered/Not Resolved]
  - Pain [Unknown]
  - Kyphosis [Not Recovered/Not Resolved]

NARRATIVE: CASE EVENT DATE: 20140814
